FAERS Safety Report 5264441-5 (Version None)
Quarter: 2007Q1

REPORT INFORMATION
  Report Type: 
  Country: None (occurrence: None)
  Receive Date: 20070309
  Receipt Date: 20070302
  Transmission Date: 20070707
  Serious: Yes (Other)
  Sender: FDA-Public Use
  Company Number: 237644

PATIENT
  Sex: Male

DRUGS (6)
  1. XOLAIR [Suspect]
     Indication: ASTHMA
     Dosage: Q2W, SUBCUTANEOUS
     Route: 058
     Dates: start: 20050401
  2. ADVAIR DISKUS 100/50 [Concomitant]
  3. PULMICORT [Concomitant]
  4. SINGULAIR [Concomitant]
  5. RESTASIS (CYCLOSPORINE) [Concomitant]
  6. DOXYCYCLINE [Concomitant]

REACTIONS (2)
  - CATARACT [None]
  - CORNEAL ABRASION [None]
